FAERS Safety Report 6352930-1 (Version None)
Quarter: 2009Q3

REPORT INFORMATION
  Report Type: 
  Country: None (occurrence: None)
  Receive Date: 20090912
  Receipt Date: 20090622
  Transmission Date: 20100115
  Serious: No
  Sender: FDA-Public Use
  Company Number: US-ABBOTT-08P-163-0449920-00

PATIENT
  Sex: Female
  Weight: 59.02 kg

DRUGS (8)
  1. HUMIRA [Suspect]
     Indication: CROHN'S DISEASE
     Route: 058
     Dates: start: 20061001, end: 20080401
  2. HUMIRA [Suspect]
     Route: 058
     Dates: start: 20080415
  3. MERCAPTOPURINE [Concomitant]
     Indication: CROHN'S DISEASE
     Dosage: AT HS
     Route: 048
  4. RANITIDINE HYDROCHLORIDE [Concomitant]
     Indication: DYSPEPSIA
     Route: 048
  5. CELEFA [Concomitant]
     Indication: DEPRESSION
     Dosage: IN AM
     Route: 048
     Dates: start: 20060401
  6. CROHN'S AND COLITIS DIGESTIVE ADVANTAGE-OTC [Concomitant]
     Indication: SUPPLEMENTATION THERAPY
     Route: 048
  7. SALBUTAMOL SULFATE [Concomitant]
     Indication: ASTHMA
     Route: 048
  8. NAPROXEN [Concomitant]
     Indication: PAIN
     Dosage: AS NEEDED 500 MG EVERY 12 500 MG EVERY 12 HOURS
     Route: 048

REACTIONS (4)
  - ABDOMINAL PAIN [None]
  - INCORRECT DOSE ADMINISTERED [None]
  - INJECTION SITE EXTRAVASATION [None]
  - URINARY TRACT INFECTION [None]
